FAERS Safety Report 6985244-7 (Version None)
Quarter: 2010Q3

REPORT INFORMATION
  Report Type: 
  Country: None (occurrence: None)
  Receive Date: 20100915
  Receipt Date: 20100903
  Transmission Date: 20110219
  Serious: Yes (Hospitalization)
  Sender: FDA-Public Use
  Company Number: CO-JNJFOC-20100902573

PATIENT
  Age: 54 Year
  Sex: Female

DRUGS (7)
  1. REMICADE [Suspect]
     Indication: RHEUMATOID ARTHRITIS
     Dosage: DOSE: 5 VIALS AT 4TH INFUSION
     Route: 042
  2. REMICADE [Suspect]
     Dosage: DOSE:(4 VIALS) AT 100 MG/VIAL
     Route: 042
  3. FOLIC ACID [Concomitant]
  4. METHOTREXATE [Concomitant]
  5. METHYLPREDNISOLONE [Concomitant]
  6. ASCORBIC ACID [Concomitant]
  7. CALCIUM [Concomitant]

REACTIONS (2)
  - HYPOAESTHESIA [None]
  - MEDICATION ERROR [None]
